FAERS Safety Report 20319407 (Version 1)
Quarter: 2022Q1

REPORT INFORMATION
  Report Type: Spontaneous
  Country: None (occurrence: IN)
  Receive Date: 20220110
  Receipt Date: 20220110
  Transmission Date: 20220423
  Serious: Yes (Other)
  Sender: FDA-Public Use
  Company Number: IN-Stason Pharmaceuticals, Inc.-2123776

PATIENT
  Age: 20 Year
  Sex: Male

DRUGS (1)
  1. CYPROHEPTADINE HYDROCHLORIDE [Suspect]
     Active Substance: CYPROHEPTADINE HYDROCHLORIDE

REACTIONS (3)
  - Suicide attempt [Recovered/Resolved]
  - Chemical poisoning [Recovered/Resolved]
  - Obsessive-compulsive symptom [Recovered/Resolved]

NARRATIVE: CASE EVENT DATE: 20211220
